FAERS Safety Report 4806868-9 (Version None)
Quarter: 2005Q4

REPORT INFORMATION
  Report Type: 
  Country: None (occurrence: None)
  Receive Date: 20051019
  Receipt Date: 20051004
  Transmission Date: 20060501
  Serious: Yes (Hospitalization)
  Sender: FDA-Public Use
  Company Number: 2005-01808

PATIENT
  Age: 74 Year
  Sex: Male
  Weight: 70 kg

DRUGS (8)
  1. VELCADE [Suspect]
     Indication: MULTIPLE MYELOMA
     Dosage: 1.80 MG, IV BOLUS
     Route: 040
     Dates: start: 20050617, end: 20050804
  2. DEXAMETHASONE [Concomitant]
  3. DURAGESIC-100 [Concomitant]
  4. RED BLOOD CELLS [Concomitant]
  5. CEFIXIME (CEFIXIME) [Concomitant]
  6. PREDNIHEXAL (PREDNISOLONE ACETATE) [Concomitant]
  7. PANTOPRAZOLE SODIUM [Concomitant]
  8. NEURONTIN [Concomitant]

REACTIONS (13)
  - BLOOD ALKALINE PHOSPHATASE INCREASED [None]
  - BLOOD IMMUNOGLOBULIN G INCREASED [None]
  - BLOOD LACTATE DEHYDROGENASE INCREASED [None]
  - C-REACTIVE PROTEIN INCREASED [None]
  - CLOSTRIDIUM COLITIS [None]
  - EPIDIDYMITIS [None]
  - GAMMA-GLUTAMYLTRANSFERASE INCREASED [None]
  - HAEMOGLOBIN DECREASED [None]
  - PLATELET COUNT DECREASED [None]
  - PYREXIA [None]
  - SOMNOLENCE [None]
  - TESTICULAR SWELLING [None]
  - UROSEPSIS [None]
